FAERS Safety Report 4365306-3 (Version None)
Quarter: 2004Q2

REPORT INFORMATION
  Report Type: 
  Country: None (occurrence: None)
  Receive Date: 20040525
  Receipt Date: 20040409
  Transmission Date: 20050107
  Serious: No
  Sender: FDA-Public Use
  Company Number: PHEH2004US01804

PATIENT
  Age: 66 Year
  Sex: Male

DRUGS (5)
  1. ZELNORM [Suspect]
     Indication: GASTROINTESTINAL MOTILITY DISORDER
     Dosage: 6 MG, BID, ORAL
     Route: 048
     Dates: start: 20040101, end: 20040101
  2. LIPRAM [Concomitant]
  3. OXYCONTIN [Concomitant]
  4. CHEMOTEHRAPEUTICS,OTHER (CHEMOTEHRAPEUTICS,OTHER) [Concomitant]
  5. RADIATION THERAPY [Concomitant]

REACTIONS (2)
  - DRUG INEFFECTIVE FOR UNAPPROVED INDICATION [None]
  - VOMITING [None]
